FAERS Safety Report 4701563-9 (Version None)
Quarter: 2005Q2

REPORT INFORMATION
  Report Type: 
  Country: None (occurrence: None)
  Receive Date: 20050628
  Receipt Date: 20050624
  Transmission Date: 20051028
  Serious: Yes (Life-Threatening, Hospitalization)
  Sender: FDA-Public Use
  Company Number: 2005PK01089

PATIENT
  Age: 80 Year
  Sex: Male
  Weight: 72 kg

DRUGS (10)
  1. SEROQUEL [Suspect]
     Route: 048
     Dates: start: 20040608, end: 20040618
  2. LEPONEX [Suspect]
     Dosage: 0-37,5 MG
     Route: 048
     Dates: start: 20040430, end: 20040510
  3. LEPONEX [Suspect]
     Route: 048
     Dates: start: 20040510, end: 20040513
  4. LEPONEX [Suspect]
     Route: 048
     Dates: start: 20040514, end: 20040516
  5. LEPONEX [Suspect]
     Route: 048
     Dates: start: 20040517, end: 20040523
  6. LEPONEX [Suspect]
     Route: 048
     Dates: start: 20040524, end: 20040608
  7. MIRTAZAPINE [Concomitant]
     Route: 048
     Dates: start: 20040402
  8. CIPRALEX [Concomitant]
     Route: 048
     Dates: start: 20040602, end: 20040625
  9. MADOPAR [Concomitant]
     Route: 048
     Dates: start: 20040419
  10. ALNA [Concomitant]
     Dates: start: 20040325

REACTIONS (3)
  - AGRANULOCYTOSIS [None]
  - ESCHERICHIA SEPSIS [None]
  - GENERAL PHYSICAL HEALTH DETERIORATION [None]
